FAERS Safety Report 25598263 (Version 1)
Quarter: 2025Q3

REPORT INFORMATION
  Report Type: Spontaneous
  Country: US (occurrence: US)
  Receive Date: 20250723
  Receipt Date: 20250723
  Transmission Date: 20251021
  Serious: Yes (Hospitalization)
  Sender: NOVARTIS
  Company Number: US-002147023-NVSC2025US114767

PATIENT
  Age: 77 Year
  Sex: Male

DRUGS (2)
  1. IMATINIB [Suspect]
     Active Substance: IMATINIB
     Indication: Morphoea
     Route: 065
  2. IMATINIB [Suspect]
     Active Substance: IMATINIB
     Indication: Scleroderma

REACTIONS (1)
  - Respiratory failure [Recovering/Resolving]
